FAERS Safety Report 8970769 (Version 1)
Quarter: 2012Q4

REPORT INFORMATION
  Report Type: 
  Country: US (occurrence: US)
  Receive Date: 20121218
  Receipt Date: 20121218
  Transmission Date: 20130627
  Serious: No
  Sender: FDA-Public Use
  Company Number: US-ABBOTT-11P-163-0887255-00

PATIENT
  Sex: Female
  Weight: 52.21 kg

DRUGS (4)
  1. PROMETRIUM [Suspect]
     Indication: HORMONE REPLACEMENT THERAPY
     Dates: end: 201106
  2. ESTROGEN [Concomitant]
     Indication: HORMONE REPLACEMENT THERAPY
  3. LISINOPRIL [Concomitant]
     Indication: HYPERTENSION
  4. SINGULAIR [Concomitant]
     Indication: ASTHMA

REACTIONS (3)
  - Dizziness [Recovered/Resolved]
  - Off label use [Recovered/Resolved]
  - Hormone replacement therapy [Recovered/Resolved]
